FAERS Safety Report 9610328 (Version 2)
Quarter: 2013Q4

REPORT INFORMATION
  Report Type: Spontaneous
  Country: US (occurrence: US)
  Receive Date: 20131009
  Receipt Date: 20131009
  Transmission Date: 20140711
  Serious: No
  Sender: FDA-Public Use
  Company Number: US-PURDUE-USA-2012-0097122

PATIENT
  Age: 17 Year
  Sex: Male

DRUGS (5)
  1. BUTRANS [Suspect]
     Indication: ANKYLOSING SPONDYLITIS
     Dosage: 10 MCG, 1/WEEK
     Route: 062
  2. CELEBREX [Concomitant]
     Indication: INFLAMMATION
     Dosage: UNK
     Route: 048
  3. ENBREL [Concomitant]
     Indication: ANKYLOSING SPONDYLITIS
     Dosage: UNK, WEEKLY
     Route: 058
  4. CYMBALTA [Concomitant]
     Indication: ANXIETY
     Dosage: UNK, PM
     Route: 048
  5. SYNTHROID [Concomitant]
     Indication: PRODUCT USED FOR UNKNOWN INDICATION
     Dosage: UNK, DAILY
     Route: 048

REACTIONS (5)
  - Urinary tract infection [Not Recovered/Not Resolved]
  - Dysuria [Not Recovered/Not Resolved]
  - Drug ineffective [Unknown]
  - Constipation [Not Recovered/Not Resolved]
  - Somnolence [Unknown]
